FAERS Safety Report 5848716-4 (Version None)
Quarter: 2008Q3

REPORT INFORMATION
  Report Type: 
  Country: None (occurrence: None)
  Receive Date: 20080818
  Receipt Date: 20080722
  Transmission Date: 20090109
  Serious: No
  Sender: FDA-Public Use
  Company Number: US-BOEHRINGER INGELHEIM GMBH, GERMANY-2008-BP-12791YA

PATIENT
  Age: 47 Year
  Sex: Male

DRUGS (5)
  1. FLOMAX [Suspect]
     Indication: GENITAL DISORDER MALE
     Dates: start: 20080501
  2. VESICARE [Suspect]
     Indication: BLADDER DISORDER
     Route: 048
     Dates: start: 20080701
  3. PREDNISONE TAB [Concomitant]
  4. LOTREL [Concomitant]
  5. NASACORT [Concomitant]

REACTIONS (3)
  - ABDOMINAL PAIN [None]
  - DIZZINESS [None]
  - DYSURIA [None]
